FAERS Safety Report 9515856 (Version 1)
Quarter: 2013Q3

REPORT INFORMATION
  Report Type: Spontaneous
  Country: US (occurrence: US)
  Receive Date: 20130911
  Receipt Date: 20130911
  Transmission Date: 20140515
  Serious: No
  Sender: FDA-Public Use
  Company Number: US-TEVA-431308USA

PATIENT
  Sex: Female
  Weight: 61.29 kg

DRUGS (1)
  1. AZILECT [Suspect]
     Indication: PARKINSON^S DISEASE
     Route: 048

REACTIONS (7)
  - Dizziness [Not Recovered/Not Resolved]
  - Hangover [Not Recovered/Not Resolved]
  - Depression [Not Recovered/Not Resolved]
  - Anxiety [Not Recovered/Not Resolved]
  - Anger [Not Recovered/Not Resolved]
  - Insomnia [Not Recovered/Not Resolved]
  - Balance disorder [Not Recovered/Not Resolved]
